FAERS Safety Report 8302324-4 (Version None)
Quarter: 2012Q2

REPORT INFORMATION
  Report Type: 
  Country: None (occurrence: None)
  Receive Date: 20120420
  Receipt Date: 20120410
  Transmission Date: 20120825
  Serious: Yes (Other)
  Sender: FDA-Public Use
  Company Number: US-ALLERGAN-1205104US

PATIENT
  Sex: Male

DRUGS (2)
  1. XALATAN [Concomitant]
     Indication: PRODUCT USED FOR UNKNOWN INDICATION
  2. ALPHAGAN [Suspect]
     Indication: PRODUCT USED FOR UNKNOWN INDICATION
     Dosage: UNK
     Route: 047

REACTIONS (5)
  - EYE DISCHARGE [None]
  - CEREBROVASCULAR ACCIDENT [None]
  - DRUG DOSE OMISSION [None]
  - OPEN ANGLE GLAUCOMA [None]
  - DRY EYE [None]
